FAERS Safety Report 24777228 (Version 1)
Quarter: 2024Q4

REPORT INFORMATION
  Report Type: Spontaneous
  Country: CN (occurrence: CN)
  Receive Date: 20241226
  Receipt Date: 20241226
  Transmission Date: 20250115
  Serious: Yes (Other)
  Sender: TRIS PHARMA, INC.
  Company Number: CN-TRIS PHARMA, INC.-24CN011795

PATIENT

DRUGS (1)
  1. QUILLIVANT XR [Suspect]
     Active Substance: METHYLPHENIDATE HYDROCHLORIDE
     Indication: Attention deficit hyperactivity disorder
     Dosage: 100 MILLIGRAM, QD
     Route: 048
     Dates: start: 20241215, end: 20241215

REACTIONS (4)
  - Hallucination [Unknown]
  - Dizziness [Unknown]
  - Insomnia [Unknown]
  - Accidental overdose [Unknown]

NARRATIVE: CASE EVENT DATE: 20241215
